FAERS Safety Report 18674539 (Version 1)
Quarter: 2020Q4

REPORT INFORMATION
  Report Type: Spontaneous
  Country: US (occurrence: US)
  Receive Date: 20201228
  Receipt Date: 20201228
  Transmission Date: 20210114
  Serious: No
  Sender: FDA-Public Use
  Company Number: US-JNJFOC-20201145091

PATIENT
  Age: 26 Year
  Sex: Female

DRUGS (7)
  1. COGENTIN [Concomitant]
     Active Substance: BENZTROPINE MESYLATE
     Indication: BORDERLINE PERSONALITY DISORDER
     Route: 065
  2. HALDOL DECANOATE [Suspect]
     Active Substance: HALOPERIDOL DECANOATE
     Indication: BORDERLINE PERSONALITY DISORDER
     Route: 030
  3. MICROZIDE [Concomitant]
     Active Substance: HYDROCHLOROTHIAZIDE
     Indication: HYPERTENSION
     Route: 065
  4. HYDRODIURIL [Concomitant]
     Active Substance: HYDROCHLOROTHIAZIDE
     Indication: HYPERTENSION
     Route: 065
  5. ZYPREXA [Suspect]
     Active Substance: OLANZAPINE
     Dosage: AT BEDTIME (5-MG DECREMENTS OVER 3 MONTH)
     Route: 065
  6. ZYPREXA [Suspect]
     Active Substance: OLANZAPINE
     Indication: BORDERLINE PERSONALITY DISORDER
     Dosage: AT BEDTIME
     Route: 065
  7. MELATONIN [Concomitant]
     Active Substance: MELATONIN
     Indication: BORDERLINE PERSONALITY DISORDER
     Dosage: AT BEDTIME
     Route: 065

REACTIONS (4)
  - Weight increased [Recovered/Resolved]
  - Off label use [Unknown]
  - Product use in unapproved indication [Unknown]
  - Hypertension [Unknown]
